FAERS Safety Report 4852850-5 (Version None)
Quarter: 2005Q4

REPORT INFORMATION
  Report Type: 
  Country: None (occurrence: None)
  Receive Date: 20051214
  Receipt Date: 20051212
  Transmission Date: 20060501
  Serious: Yes (Death)
  Sender: FDA-Public Use
  Company Number: US-BOEHRINGER INGELHEIM PHARMACEUTICALS, INC.-2005-BP-21289BP

PATIENT
  Age: 42 Year
  Sex: Male

DRUGS (1)
  1. MOBIC [Suspect]

REACTIONS (1)
  - PANCREATITIS [None]
